FAERS Safety Report 9214649 (Version 1)
Quarter: 2013Q1

REPORT INFORMATION
  Report Type: Spontaneous
  Country: US (occurrence: None)
  Receive Date: 20120827
  Receipt Date: 20120827
  Transmission Date: 20140127
  Serious: Yes (Other)
  Sender: FDA-Public Use
  Company Number: 353834

PATIENT
  Age: 78 Year
  Sex: Male
  Weight: 107 kg

DRUGS (6)
  1. VICTOZA (LIRAGLUTIDE) SOLUTION FOR INJECTION, 6MG/ML [Suspect]
     Indication: TYPE 2 DIABETES MELLITUS
     Route: 058
     Dates: end: 20120604
  2. BYSTOLIC (NEBIVOLOL HYDROCHLORIDE) [Concomitant]
  3. SYNTHROID (LEVOTHYROXINE SODIUM) [Concomitant]
  4. LIPOTHIN (FENOFIBRATE) [Concomitant]
  5. LOVAZA (OMEGA-3 MARINE TRIGLYCERIDES) [Concomitant]
  6. FLOMAX (MORNIFLUMATE) [Concomitant]

REACTIONS (1)
  - Pancreatitis [None]
